FAERS Safety Report 25885325 (Version 1)
Quarter: 2025Q4

REPORT INFORMATION
  Report Type: Spontaneous
  Country: US (occurrence: US)
  Receive Date: 20251006
  Receipt Date: 20251006
  Transmission Date: 20260118
  Serious: No
  Sender: SANOFI AVENTIS
  Company Number: US-SA-2025SA295691

PATIENT
  Age: 56 Year
  Sex: Male

DRUGS (6)
  1. DUPIXENT [Suspect]
     Active Substance: DUPILUMAB
     Indication: Nasal polyps
     Dosage: 300 MG, OTHER
     Route: 058
     Dates: start: 20250311
  2. FLUTICASONE [Concomitant]
     Active Substance: FLUTICASONE
  3. MUCINEX [Concomitant]
     Active Substance: GUAIFENESIN
  4. ASPIRIN [Concomitant]
     Active Substance: ASPIRIN
  5. VITAMINS NOS [Concomitant]
     Active Substance: VITAMINS
  6. ALLOPURINOL [Concomitant]
     Active Substance: ALLOPURINOL
     Dosage: UNK

REACTIONS (2)
  - Hypoaesthesia [Recovered/Resolved]
  - Paraesthesia [Recovered/Resolved]

NARRATIVE: CASE EVENT DATE: 20251001
